FAERS Safety Report 12607159 (Version 1)
Quarter: 2016Q3

REPORT INFORMATION
  Report Type: Spontaneous
  Country: PT (occurrence: ES)
  Receive Date: 20160729
  Receipt Date: 20160729
  Transmission Date: 20161109
  Serious: Yes (Other)
  Sender: FDA-Public Use
  Company Number: PT-SUNOVION-2016SUN001840

PATIENT

DRUGS (2)
  1. LAMOTRIGINE. [Suspect]
     Active Substance: LAMOTRIGINE
     Indication: PRODUCT USED FOR UNKNOWN INDICATION
     Dosage: UNK, UNKNOWN
     Route: 065
  2. ZEBINIX [Suspect]
     Active Substance: ESLICARBAZEPINE ACETATE
     Indication: SEDATION
     Dosage: 800 MG, DAILY
     Route: 048

REACTIONS (5)
  - Amyloidosis [Unknown]
  - Suicidal ideation [Unknown]
  - Haematoma [Not Recovered/Not Resolved]
  - Off label use [Unknown]
  - Drug dose titration not performed [Unknown]
